FAERS Safety Report 7603310-X (Version None)
Quarter: 2011Q3

REPORT INFORMATION
  Report Type: 
  Country: None (occurrence: None)
  Receive Date: 20110712
  Receipt Date: 20110629
  Transmission Date: 20111222
  Serious: Yes (Other)
  Sender: FDA-Public Use
  Company Number: PHHY2011CA48059

PATIENT
  Sex: Female

DRUGS (1)
  1. ZOLEDRONIC ACID [Suspect]
     Indication: OSTEOPOROSIS
     Dosage: 5 MG, UNK
     Route: 042
     Dates: start: 20100526

REACTIONS (8)
  - HAEMOGLOBIN DECREASED [None]
  - BLOOD SODIUM DECREASED [None]
  - ANTIPSYCHOTIC DRUG LEVEL INCREASED [None]
  - URINARY TRACT INFECTION [None]
  - VOMITING [None]
  - HAEMATOCRIT DECREASED [None]
  - NAUSEA [None]
  - PLATELET COUNT INCREASED [None]
